FAERS Safety Report 14458034 (Version 1)
Quarter: 2018Q1

REPORT INFORMATION
  Report Type: Spontaneous
  Country: US (occurrence: US)
  Receive Date: 20180130
  Receipt Date: 20180130
  Transmission Date: 20180509
  Serious: Yes (Hospitalization)
  Sender: FDA-Public Use
  Company Number: US-TESARO INC.-TS50-00145-2018USA

PATIENT
  Sex: Male

DRUGS (2)
  1. ROLAPITANT HYDROCHLORIDE [Suspect]
     Active Substance: ROLAPITANT
     Indication: NAUSEA
     Dosage: 180MG, EVERY 21 DAYS
     Route: 048
  2. ROLAPITANT HYDROCHLORIDE [Suspect]
     Active Substance: ROLAPITANT
     Indication: VOMITING

REACTIONS (2)
  - Infection [Unknown]
  - Platelet count decreased [Unknown]
